FAERS Safety Report 7322235-0 (Version None)
Quarter: 2011Q1

REPORT INFORMATION
  Report Type: 
  Country: None (occurrence: None)
  Receive Date: 20110301
  Receipt Date: 20110218
  Transmission Date: 20110831
  Serious: Yes (Hospitalization)
  Sender: FDA-Public Use
  Company Number: 2008BI009441

PATIENT
  Age: 64 Year
  Sex: Female

DRUGS (1)
  1. TYSABRI [Suspect]
     Indication: MULTIPLE SCLEROSIS
     Route: 042
     Dates: start: 20070510

REACTIONS (5)
  - FALL [None]
  - CONTUSION [None]
  - APPENDICITIS PERFORATED [None]
  - POLYARTHRITIS [None]
  - JOINT SWELLING [None]
